FAERS Safety Report 11266216 (Version 1)
Quarter: 2015Q2

REPORT INFORMATION
  Report Type: Spontaneous
  Country: US (occurrence: None)
  Receive Date: 20150625
  Receipt Date: 20150625
  Transmission Date: 20150821
  Serious: Yes (Other)
  Sender: FDA-Public Use
  Company Number: PHEH2015US006556

PATIENT
  Age: 62 Year
  Sex: Female

DRUGS (2)
  1. AROMASIN [Concomitant]
     Active Substance: EXEMESTANE
  2. AFINITOR [Suspect]
     Active Substance: EVEROLIMUS
     Indication: PRODUCT USED FOR UNKNOWN INDICATION
     Dosage: 1 DF, QD FOR TWO WEEKS, UNKNOWN

REACTIONS (3)
  - Mouth ulceration [None]
  - Hepatitis C [None]
  - Rash generalised [None]
